FAERS Safety Report 11321973 (Version 6)
Quarter: 2016Q1

REPORT INFORMATION
  Report Type: Report from Study
  Country: US (occurrence: US)
  Receive Date: 20150729
  Receipt Date: 20160205
  Transmission Date: 20160525
  Serious: Yes (Hospitalization, Other)
  Sender: FDA-Public Use
  Company Number: US-ALEXION PHARMACEUTICALS INC-A201502740

PATIENT
  Age: 50 Year
  Sex: Male

DRUGS (1)
  1. SOLIRIS [Suspect]
     Active Substance: ECULIZUMAB
     Indication: HAEMOLYTIC URAEMIC SYNDROME
     Dosage: UNK
     Route: 042

REACTIONS (11)
  - Pulmonary embolism [Unknown]
  - Bronchitis [Unknown]
  - Chills [Unknown]
  - Costochondritis [Unknown]
  - Chest pain [Unknown]
  - Dyspnoea [Unknown]
  - Complement factor abnormal [Unknown]
  - Muscle spasms [Unknown]
  - Pneumonia [Unknown]
  - Fibrin D dimer increased [Unknown]
  - Fatigue [Unknown]

NARRATIVE: CASE EVENT DATE: 20150716
